FAERS Safety Report 7315994-4 (Version None)
Quarter: 2011Q1

REPORT INFORMATION
  Report Type: 
  Country: None (occurrence: None)
  Receive Date: 20110225
  Receipt Date: 20110214
  Transmission Date: 20110831
  Serious: Yes (Other)
  Sender: FDA-Public Use
  Company Number: PHHY2011CA11578

PATIENT
  Sex: Male

DRUGS (3)
  1. NORVASC [Concomitant]
  2. NEXIUM [Concomitant]
  3. DIOVAN [Suspect]
     Dosage: 160 MG, UNK

REACTIONS (3)
  - ABDOMINAL DISCOMFORT [None]
  - MACULAR DEGENERATION [None]
  - OSTEOARTHRITIS [None]
